FAERS Safety Report 5928787-7 (Version None)
Quarter: 2008Q4

REPORT INFORMATION
  Report Type: 
  Country: None (occurrence: None)
  Receive Date: 20081021
  Receipt Date: 20081006
  Transmission Date: 20090506
  Serious: Yes (Life-Threatening, Hospitalization, Disabling)
  Sender: FDA-Public Use
  Company Number: 2008AL011186

PATIENT
  Age: 69 Year
  Sex: Male

DRUGS (5)
  1. RAMIPRIL [Suspect]
     Indication: HYPERTENSION
     Dosage: PO
     Route: 048
     Dates: start: 20060731
  2. BETA BLOCKING AGENTS [Concomitant]
  3. SALBUTAMOL [Concomitant]
  4. STEROIDS [Concomitant]
  5. METFORMIN HCL [Concomitant]

REACTIONS (2)
  - ANGIOEDEMA [None]
  - UPPER AIRWAY OBSTRUCTION [None]
